FAERS Safety Report 5821105-4 (Version None)
Quarter: 2008Q3

REPORT INFORMATION
  Report Type: 
  Country: None (occurrence: None)
  Receive Date: 20080724
  Receipt Date: 20080718
  Transmission Date: 20090109
  Serious: Yes (Hospitalization)
  Sender: FDA-Public Use
  Company Number: IL-WATSON-2008-04380

PATIENT
  Age: 80 Year
  Sex: Male

DRUGS (8)
  1. CLARITHROMYCIN EXTENDED RELEASE [Suspect]
     Indication: HELICOBACTER INFECTION
     Dosage: 500 MG, BID
     Route: 065
  2. REPAGLINIDE [Suspect]
     Indication: TYPE 2 DIABETES MELLITUS
     Dosage: 0.5 MG, TID FOR PREVIOUS 2 YEARS
     Route: 048
  3. AMOXICILLIN [Concomitant]
     Indication: HELICOBACTER INFECTION
     Dosage: 250 MG, BID
  4. AMLODIPINE [Concomitant]
     Indication: DRUG USE FOR UNKNOWN INDICATION
     Route: 065
  5. ASPIRIN [Concomitant]
     Indication: DRUG USE FOR UNKNOWN INDICATION
     Route: 065
  6. OMEPRAZOLE [Concomitant]
     Indication: DRUG USE FOR UNKNOWN INDICATION
     Dosage: 20 MG, BID
  7. FUROSEMIDE [Concomitant]
     Indication: DRUG USE FOR UNKNOWN INDICATION
     Route: 065
  8. CITALOPRAM HYDROBROMIDE [Concomitant]
     Indication: DRUG USE FOR UNKNOWN INDICATION
     Route: 065

REACTIONS (2)
  - HYPOGLYCAEMIA [None]
  - INHIBITORY DRUG INTERACTION [None]
